FAERS Safety Report 10093663 (Version 1)
Quarter: 2014Q2

REPORT INFORMATION
  Report Type: Spontaneous
  Country: US (occurrence: US)
  Receive Date: 20140421
  Receipt Date: 20140421
  Transmission Date: 20141212
  Serious: No
  Sender: FDA-Public Use
  Company Number: US-SA-2014SA009540

PATIENT
  Age: 72 Year
  Sex: Female

DRUGS (4)
  1. ALLEGRA [Suspect]
     Route: 048
     Dates: start: 20140115
  2. ALL OTHER THERAPEUTIC PRODUCTS [Concomitant]
  3. CALCIUM [Concomitant]
  4. VITAMIN D [Concomitant]

REACTIONS (1)
  - Haematuria [Not Recovered/Not Resolved]
